FAERS Safety Report 20387495 (Version 1)
Quarter: 2022Q1

REPORT INFORMATION
  Report Type: Spontaneous
  Country: US (occurrence: US)
  Receive Date: 20220127
  Receipt Date: 20220127
  Transmission Date: 20220423
  Serious: No
  Sender: FDA-Public Use
  Company Number: US-ALLERGAN-2133962US

PATIENT
  Age: 52 Year
  Sex: Female

DRUGS (2)
  1. BOTOX [Suspect]
     Active Substance: ONABOTULINUMTOXINA
     Indication: Migraine
     Dosage: UNK, SINGLE
     Dates: start: 2019, end: 2019
  2. BOTOX [Suspect]
     Active Substance: ONABOTULINUMTOXINA
     Dosage: UNK, SINGLE
     Dates: start: 2018, end: 2018

REACTIONS (5)
  - Off label use [Unknown]
  - Alopecia [Recovering/Resolving]
  - Hypersensitivity [Unknown]
  - Paraesthesia [Recovering/Resolving]
  - Pruritus [Recovering/Resolving]
